FAERS Safety Report 10623302 (Version 1)
Quarter: 2014Q4

REPORT INFORMATION
  Report Type: Other
  Country: GB (occurrence: GB)
  Receive Date: 20141203
  Receipt Date: 20141203
  Transmission Date: 20150529
  Serious: Yes (Life-Threatening, Other)
  Sender: FDA-Public Use
  Company Number: GB-MYLANLABS-2014M1011757

PATIENT

DRUGS (6)
  1. CITALOPRAM [Suspect]
     Active Substance: CITALOPRAM HYDROBROMIDE
     Indication: DEPRESSION
     Dosage: 40 MG DAILY
     Route: 048
     Dates: start: 2014
  2. DIHYDROCODEINE [Suspect]
     Active Substance: DIHYDROCODEINE
     Dosage: 40 DF, UNK (OVERDOSE: 40 TABLETS)
     Route: 048
     Dates: start: 201407, end: 201407
  3. CITALOPRAM [Suspect]
     Active Substance: CITALOPRAM HYDROBROMIDE
     Dosage: 20 MG DAILY
     Route: 048
     Dates: start: 201404, end: 2014
  4. CODEINE PHOSPHATE [Suspect]
     Active Substance: CODEINE PHOSPHATE
     Dosage: 1800 MG, UNK (OVERDOSE: 60 X 30 MG TABLETS)
     Route: 048
     Dates: start: 201407, end: 201407
  5. TRAMADOL [Suspect]
     Active Substance: TRAMADOL
     Dosage: 100 DF, UNK (OVERDOSE: 100 TABLETS)
     Route: 048
     Dates: start: 201407, end: 201407
  6. CITALOPRAM [Suspect]
     Active Substance: CITALOPRAM HYDROBROMIDE
     Dosage: 30 MG DAILY
     Route: 048
     Dates: start: 2014, end: 2014

REACTIONS (3)
  - Suicide attempt [Recovered/Resolved]
  - Malabsorption [Recovered/Resolved]
  - Intentional overdose [Recovered/Resolved]

NARRATIVE: CASE EVENT DATE: 201407
